FAERS Safety Report 6310670-9 (Version None)
Quarter: 2009Q3

REPORT INFORMATION
  Report Type: 
  Country: None (occurrence: None)
  Receive Date: 20090810
  Receipt Date: 20090728
  Transmission Date: 20100115
  Serious: Yes (Other)
  Sender: FDA-Public Use
  Company Number: 1000007976

PATIENT
  Age: 27 Year
  Sex: Female

DRUGS (2)
  1. ESCITALOPRAM [Suspect]
     Dosage: 5 MG (5 MG, 1IN 1 D),ORAL
     Route: 048
     Dates: start: 20090623, end: 20090101
  2. ESCITALOPRAM [Suspect]
     Dosage: 10 MG (10 MG,  1 IN 1 D), ORAL
     Route: 048
     Dates: start: 20090101, end: 20090723

REACTIONS (1)
  - SOMNAMBULISM [None]
